FAERS Safety Report 6883748-9 (Version None)
Quarter: 2010Q3

REPORT INFORMATION
  Report Type: 
  Country: None (occurrence: None)
  Receive Date: 20100729
  Receipt Date: 20100721
  Transmission Date: 20110219
  Serious: Yes (Hospitalization)
  Sender: FDA-Public Use
  Company Number: B0663977A

PATIENT
  Sex: Female
  Weight: 62.1 kg

DRUGS (2)
  1. PAZOPANIB [Suspect]
     Indication: NEOPLASM
     Dosage: 400MG PER DAY
     Route: 048
     Dates: start: 20100603, end: 20100628
  2. EPIRUBICIN [Suspect]
     Indication: NEOPLASM
     Dosage: 75MGM2 PER DAY
     Route: 040
     Dates: start: 20100602, end: 20100623

REACTIONS (5)
  - CHEST PAIN [None]
  - DYSPNOEA [None]
  - NAUSEA [None]
  - PULMONARY EMBOLISM [None]
  - VOMITING [None]
